FAERS Safety Report 7611902-7 (Version None)
Quarter: 2011Q3

REPORT INFORMATION
  Report Type: 
  Country: None (occurrence: None)
  Receive Date: 20110715
  Receipt Date: 20110704
  Transmission Date: 20111222
  Serious: Yes (Other)
  Sender: FDA-Public Use
  Company Number: FR-JNJFOC-20110608696

PATIENT
  Age: 47 Year
  Sex: Male
  Weight: 88 kg

DRUGS (6)
  1. REMICADE [Suspect]
     Route: 042
     Dates: start: 20110420
  2. ARAVA [Concomitant]
     Indication: PSORIATIC ARTHROPATHY
     Dates: start: 20070101
  3. REMICADE [Suspect]
     Indication: PSORIATIC ARTHROPATHY
     Route: 042
     Dates: start: 20110126
  4. REMICADE [Suspect]
     Route: 042
     Dates: start: 20110223
  5. REMICADE [Suspect]
     Route: 042
     Dates: start: 20110114
  6. REMICADE [Suspect]
     Route: 042
     Dates: start: 20110615

REACTIONS (3)
  - INFUSION RELATED REACTION [None]
  - LARYNGEAL OEDEMA [None]
  - TACHYCARDIA [None]
